FAERS Safety Report 6500092-X (Version None)
Quarter: 2009Q4

REPORT INFORMATION
  Report Type: 
  Country: None (occurrence: None)
  Receive Date: 20091216
  Receipt Date: 20091204
  Transmission Date: 20100525
  Serious: Yes (Other)
  Sender: FDA-Public Use
  Company Number: US-JNJFOC-20091102203

PATIENT
  Sex: Male
  Weight: 111.13 kg

DRUGS (3)
  1. STELARA [Suspect]
     Indication: PSORIASIS
     Route: 058
  2. HYDROCHLOROTHIAZIDE [Concomitant]
     Indication: HYPERTENSION
  3. CEPHALEXIN [Concomitant]
     Indication: PROPHYLAXIS

REACTIONS (2)
  - PSORIATIC ARTHROPATHY [None]
  - TYPE 2 DIABETES MELLITUS [None]
